FAERS Safety Report 5315972-0 (Version None)
Quarter: 2007Q1

REPORT INFORMATION
  Report Type: 
  Country: None (occurrence: None)
  Receive Date: 20070130
  Receipt Date: 20061120
  Transmission Date: 20070707
  Serious: No
  Sender: FDA-Public Use
  Company Number: 200619457US

PATIENT
  Sex: Female

DRUGS (2)
  1. KETEK [Suspect]
     Indication: BRONCHIAL DISORDER
     Dates: start: 20061118
  2. TRIAMCINOLONE ACETONIDE (KENALOG) [Concomitant]

REACTIONS (2)
  - FLUSHING [None]
  - INSOMNIA [None]
